FAERS Safety Report 4700966-6 (Version None)
Quarter: 2005Q2

REPORT INFORMATION
  Report Type: 
  Country: None (occurrence: None)
  Receive Date: 20050624
  Receipt Date: 20050608
  Transmission Date: 20051028
  Serious: Yes (Death)
  Sender: FDA-Public Use
  Company Number: 2005001103

PATIENT
  Age: 55 Year
  Sex: Female

DRUGS (4)
  1. TARCEVA [Suspect]
     Indication: NON-SMALL CELL LUNG CANCER
     Dosage: SEE IMAGE
     Route: 048
     Dates: start: 20050101, end: 20050301
  2. TARCEVA [Suspect]
     Indication: NON-SMALL CELL LUNG CANCER
     Dosage: SEE IMAGE
     Route: 048
     Dates: start: 20050301
  3. AVASTIN [Suspect]
     Dosage: 15MG/KG, INTRAVENOUS
     Route: 042
     Dates: start: 20050413
  4. WARFARIN SODIUM [Concomitant]

REACTIONS (9)
  - DIARRHOEA [None]
  - DISEASE PROGRESSION [None]
  - DISEASE RECURRENCE [None]
  - HAEMORRHAGE [None]
  - JUGULAR VEIN THROMBOSIS [None]
  - LUNG ADENOCARCINOMA [None]
  - MASS [None]
  - PNEUMONIA [None]
  - PULMONARY OEDEMA [None]
